FAERS Safety Report 24718012 (Version 2)
Quarter: 2025Q1

REPORT INFORMATION
  Report Type: Spontaneous
  Country: US (occurrence: US)
  Receive Date: 20241210
  Receipt Date: 20250121
  Transmission Date: 20250409
  Serious: No
  Sender: TAIHO ONCOLOGY INC
  Company Number: US-TAIHOP-2024-011764

PATIENT
  Sex: Male
  Weight: 75.75 kg

DRUGS (1)
  1. LONSURF [Suspect]
     Active Substance: TIPIRACIL HYDROCHLORIDE\TRIFLURIDINE
     Indication: Colorectal cancer
     Dosage: CYCLE UNKNOWN
     Route: 048
     Dates: start: 20240925

REACTIONS (1)
  - Drug ineffective [Not Recovered/Not Resolved]
